FAERS Safety Report 7875402-1 (Version None)
Quarter: 2011Q4

REPORT INFORMATION
  Report Type: 
  Country: None (occurrence: None)
  Receive Date: 20111031
  Receipt Date: 20111018
  Transmission Date: 20120403
  Serious: Yes (Hospitalization, Other)
  Sender: FDA-Public Use
  Company Number: PHNR2007AU02216

PATIENT
  Sex: Male

DRUGS (13)
  1. OSTELIN [Concomitant]
     Dosage: UNK UKN, QD
     Route: 048
  2. MIRTAZAPINE [Concomitant]
     Dosage: 30 MG, QD
     Route: 048
  3. ATORVASTATIN [Concomitant]
     Dosage: 10 MG, QD
     Route: 048
  4. CLOZARIL [Suspect]
     Dosage: 800-900 MG/DAY
     Dates: end: 20030501
  5. CHLORPROMAZINE [Concomitant]
     Dosage: 250 MG TDS + 50 MG -100 MG PRN
     Route: 048
  6. QUETIAPINE [Concomitant]
     Dosage: 800 MG, BID
     Route: 048
  7. FERROUS SULFATE TAB [Concomitant]
     Dosage: 325 MG, QD
     Route: 048
  8. DIAZEPAM [Concomitant]
     Dosage: 5 MG, BID
     Route: 048
  9. CLOZARIL [Suspect]
     Indication: SCHIZOPHRENIA
     Dosage: 1050 MG
     Dates: start: 19931005
  10. CLOZARIL [Suspect]
     Dosage: 900 MG
     Dates: start: 19931110
  11. CLOZAPINE [Suspect]
     Dates: start: 20070101
  12. ZUCLOPENTHIXOL [Concomitant]
  13. OLANZAPINE [Concomitant]

REACTIONS (17)
  - PNEUMOTHORAX [None]
  - SCAPULA FRACTURE [None]
  - PSYCHOTIC DISORDER [None]
  - COMPUTERISED TOMOGRAM ABNORMAL [None]
  - SUICIDAL IDEATION [None]
  - RIB FRACTURE [None]
  - X-RAY LIMB ABNORMAL [None]
  - NEUTROPHIL COUNT DECREASED [None]
  - WHITE BLOOD CELL COUNT DECREASED [None]
  - SUICIDE ATTEMPT [None]
  - SPINAL FRACTURE [None]
  - SCHIZOPHRENIA [None]
  - ROAD TRAFFIC ACCIDENT [None]
  - NEUTROPENIA [None]
  - POLYDIPSIA [None]
  - SKELETAL INJURY [None]
  - BACK PAIN [None]
